FAERS Safety Report 20993368 (Version 1)
Quarter: 2022Q2

REPORT INFORMATION
  Report Type: Spontaneous
  Country: JP (occurrence: JP)
  Receive Date: 20220622
  Receipt Date: 20220622
  Transmission Date: 20220720
  Serious: Yes (Other)
  Sender: FDA-Public Use
  Company Number: JP-PFIZER INC-PV202200005267

PATIENT

DRUGS (3)
  1. LYRICA [Suspect]
     Active Substance: PREGABALIN
     Indication: Neuralgia
     Dosage: 100MG, DIVIDED IN 2 TIMES
     Route: 048
  2. LYRICA [Suspect]
     Active Substance: PREGABALIN
     Indication: Cancer pain
     Dosage: 150MG, DIVIDED IN 2 TIMES
     Route: 048
     Dates: start: 20220618, end: 20220618
  3. LYRICA [Suspect]
     Active Substance: PREGABALIN
     Dosage: 200MG, DIVIDED IN 2 TIMES
     Route: 048
     Dates: start: 20220619

REACTIONS (2)
  - Coma [Unknown]
  - Condition aggravated [Unknown]

NARRATIVE: CASE EVENT DATE: 20220619
